FAERS Safety Report 16301143 (Version 1)
Quarter: 2019Q2

REPORT INFORMATION
  Report Type: Spontaneous
  Country: US (occurrence: US)
  Receive Date: 20190510
  Receipt Date: 20190510
  Transmission Date: 20190711
  Serious: No
  Sender: FDA-Public Use
  Company Number: PHEH2019US020248

PATIENT
  Sex: Female

DRUGS (2)
  1. TOBRADEX [Suspect]
     Active Substance: DEXAMETHASONE\TOBRAMYCIN
     Indication: PRODUCT USED FOR UNKNOWN INDICATION
     Dosage: UNK UNK, BID
     Route: 065
  2. HUMIRA [Suspect]
     Active Substance: ADALIMUMAB
     Indication: PSORIATIC ARTHROPATHY
     Dosage: 40 MG, UNK (1 IN 2-2, 4 IN 1 D)
     Route: 058
     Dates: start: 20180802

REACTIONS (7)
  - Lacrimation increased [Unknown]
  - Swelling of eyelid [Not Recovered/Not Resolved]
  - Seasonal allergy [Unknown]
  - Blepharitis [Recovering/Resolving]
  - Eye inflammation [Recovering/Resolving]
  - Eye irritation [Recovered/Resolved]
  - Eye disorder [Unknown]
